FAERS Safety Report 23281586 (Version 1)
Quarter: 2023Q4

REPORT INFORMATION
  Report Type: Spontaneous
  Country: FR (occurrence: FR)
  Receive Date: 20231211
  Receipt Date: 20231211
  Transmission Date: 20240110
  Serious: Yes (Other)
  Sender: FDA-Public Use
  Company Number: FR-JNJFOC-20231202396

PATIENT
  Sex: Female

DRUGS (2)
  1. STELARA [Suspect]
     Active Substance: USTEKINUMAB
     Indication: Crohn^s disease
     Route: 058
  2. STELARA [Suspect]
     Active Substance: USTEKINUMAB
     Indication: Spondylitis

REACTIONS (12)
  - Neuropathy peripheral [Unknown]
  - Pain in extremity [Unknown]
  - Rash [Unknown]
  - Alopecia [Unknown]
  - Tooth disorder [Unknown]
  - Gingivitis [Unknown]
  - Dysphonia [Unknown]
  - Oropharyngeal pain [Unknown]
  - Headache [Unknown]
  - Acne [Unknown]
  - Arthralgia [Unknown]
  - Product dose omission issue [Unknown]
